FAERS Safety Report 11321136 (Version 1)
Quarter: 2015Q3

REPORT INFORMATION
  Report Type: Spontaneous
  Country: DE (occurrence: DE)
  Receive Date: 20150729
  Receipt Date: 20150729
  Transmission Date: 20151125
  Serious: Yes (Hospitalization, Disabling)
  Sender: FDA-Public Use
  Company Number: DE-HOSPIRA-2819453

PATIENT
  Age: 76 Year
  Sex: Male

DRUGS (3)
  1. PACLITAXEL. [Suspect]
     Active Substance: PACLITAXEL
     Indication: ADENOCARCINOMA
     Route: 042
     Dates: start: 20080229, end: 20080229
  2. PACLITAXEL. [Suspect]
     Active Substance: PACLITAXEL
     Indication: METASTASES TO LYMPH NODES
     Route: 042
     Dates: start: 20080325, end: 20080325
  3. PACLITAXEL. [Suspect]
     Active Substance: PACLITAXEL
     Indication: MALIGNANT NEOPLASM OF UNKNOWN PRIMARY SITE
     Route: 042
     Dates: start: 20080415, end: 20080415

REACTIONS (3)
  - Visual impairment [Unknown]
  - Retinal oedema [Unknown]
  - Retinal operation [Unknown]
